FAERS Safety Report 4471537-4 (Version None)
Quarter: 2004Q4

REPORT INFORMATION
  Report Type: 
  Country: None (occurrence: None)
  Receive Date: 20041012
  Receipt Date: 20040820
  Transmission Date: 20050328
  Serious: Yes (Death)
  Sender: FDA-Public Use
  Company Number: US-ABBOTT-04P-163-0271293-00

PATIENT
  Sex: Male

DRUGS (1)
  1. SIBUTRAMINE [Suspect]
     Indication: OBESITY
     Dates: start: 20040101

REACTIONS (1)
  - CARDIAC DISORDER [None]
